FAERS Safety Report 19485299 (Version 6)
Quarter: 2021Q4

REPORT INFORMATION
  Report Type: Report from Study
  Country: US (occurrence: US)
  Receive Date: 20210702
  Receipt Date: 20211202
  Transmission Date: 20220303
  Serious: Yes (Death, Hospitalization, Other)
  Sender: FDA-Public Use
  Company Number: US-ACADIA PHARMACEUTICALS INC.-ACA-2021-PIM-002183

PATIENT
  Age: 72 Year
  Sex: Male
  Weight: 73 kg

DRUGS (6)
  1. NUPLAZID [Suspect]
     Active Substance: PIMAVANSERIN TARTRATE
     Indication: Parkinson^s disease psychosis
     Dosage: 34 MILLIGRAM, QD
     Route: 048
     Dates: start: 202103
  2. NUPLAZID [Suspect]
     Active Substance: PIMAVANSERIN TARTRATE
     Indication: Hallucination
     Dosage: 34 MILLIGRAM, QD
     Route: 048
     Dates: start: 20210514
  3. NUPLAZID [Suspect]
     Active Substance: PIMAVANSERIN TARTRATE
     Indication: Dementia
  4. CARBIDOPA\LEVODOPA [Concomitant]
     Active Substance: CARBIDOPA\LEVODOPA
  5. LEVOTHYROXINE [Concomitant]
     Active Substance: LEVOTHYROXINE
  6. VITAMIN D NOS [Concomitant]
     Active Substance: VITAMIN D NOS

REACTIONS (16)
  - Death [Fatal]
  - Fall [Unknown]
  - Blood pressure increased [Not Recovered/Not Resolved]
  - Erythema [Not Recovered/Not Resolved]
  - Diarrhoea [Unknown]
  - Disorientation [Unknown]
  - Headache [Unknown]
  - Skin discolouration [Unknown]
  - Patient elopement [Unknown]
  - Feeling abnormal [Unknown]
  - Appetite disorder [Unknown]
  - Abnormal behaviour [Unknown]
  - Peripheral swelling [Not Recovered/Not Resolved]
  - Hallucinations, mixed [Unknown]
  - Agitation [Unknown]
  - Confusional state [Unknown]

NARRATIVE: CASE EVENT DATE: 20210514
